FAERS Safety Report 24560702 (Version 1)
Quarter: 2024Q4

REPORT INFORMATION
  Report Type: Spontaneous
  Country: JP (occurrence: JP)
  Receive Date: 20241029
  Receipt Date: 20241029
  Transmission Date: 20250115
  Serious: Yes (Other)
  Sender: ALEXION PHARMACEUTICALS
  Company Number: JP-ASTRAZENECA-202410GLO018366JP

PATIENT
  Age: 74 Year

DRUGS (5)
  1. OSIMERTINIB [Suspect]
     Active Substance: OSIMERTINIB
     Indication: Lung adenocarcinoma
     Route: 065
  2. OSIMERTINIB [Suspect]
     Active Substance: OSIMERTINIB
     Indication: EGFR gene mutation
  3. BEVACIZUMAB;CARBOPLATIN [Concomitant]
     Indication: Bone cancer metastatic
     Route: 065
  4. ERLOTINIB [Concomitant]
     Active Substance: ERLOTINIB
     Indication: Bone cancer metastatic
     Route: 065
  5. RAMUCIRUMAB [Concomitant]
     Active Substance: RAMUCIRUMAB
     Indication: Bone cancer metastatic
     Route: 065

REACTIONS (1)
  - Malignant neoplasm progression [Unknown]
